FAERS Safety Report 11249886 (Version 1)
Quarter: 2015Q3

REPORT INFORMATION
  Report Type: Spontaneous
  Country: US (occurrence: US)
  Receive Date: 20150708
  Receipt Date: 20150708
  Transmission Date: 20151125
  Serious: Yes (Other)
  Sender: FDA-Public Use
  Company Number: US-ELI_LILLY_AND_COMPANY-US201009000994

PATIENT
  Sex: Female

DRUGS (1)
  1. GEMZAR [Suspect]
     Active Substance: GEMCITABINE HYDROCHLORIDE
     Indication: ANAL CANCER
     Dosage: UNK, UNK
     Dates: start: 20100623, end: 20100818

REACTIONS (2)
  - Malignant neoplasm progression [Unknown]
  - Off label use [Unknown]
